FAERS Safety Report 9308446 (Version 1)
Quarter: 2013Q2

REPORT INFORMATION
  Report Type: Spontaneous
  Country: FR (occurrence: GB)
  Receive Date: 20130524
  Receipt Date: 20130524
  Transmission Date: 20140414
  Serious: Yes (Other)
  Sender: FDA-Public Use
  Company Number: GB-FRI-1000045348

PATIENT
  Sex: Female

DRUGS (2)
  1. CAMPRAL [Suspect]
     Indication: ALCOHOLISM
     Dosage: 1998 MG
  2. DISULFIRAM [Suspect]
     Indication: ALCOHOLISM

REACTIONS (1)
  - Tongue neoplasm malignant stage unspecified [Unknown]
